FAERS Safety Report 13390907 (Version 1)
Quarter: 2017Q1

REPORT INFORMATION
  Report Type: Spontaneous
  Country: NL (occurrence: NL)
  Receive Date: 20170331
  Receipt Date: 20170331
  Transmission Date: 20170429
  Serious: Yes (Other)
  Sender: FDA-Public Use
  Company Number: NL-TEVA-753600ACC

PATIENT
  Age: 60 Year
  Sex: Female
  Weight: 72 kg

DRUGS (9)
  1. SERETIDE DISKUS INHPDR 50/100MCG 60DO [Concomitant]
     Dosage: 2 DOSAGE FORMS DAILY;
     Route: 055
  2. DESLORATADINE TABLET 5MG [Concomitant]
     Dosage: 5 MILLIGRAM DAILY;
     Route: 048
  3. GABAPENTINE CAPSULE 300MG [Concomitant]
     Dosage: 600 MILLIGRAM DAILY;
     Route: 048
  4. VENTOLIN DISKUS INHPDR 200MCG 60DO [Concomitant]
     Route: 055
  5. FLUTICASON-PROPIONAAT NEUSSPRAY 50UG/DO [Concomitant]
     Active Substance: FLUTICASONE PROPIONATE
     Dosage: 100 MICROGRAM DAILY;
     Route: 045
  6. TEMAZEPAM. [Concomitant]
     Active Substance: TEMAZEPAM
     Dosage: 10 MILLIGRAM DAILY;
     Route: 048
  7. FOLIUMZUUR TABLET 5MG [Concomitant]
     Active Substance: FOLIC ACID
     Route: 048
  8. METHOTREXATE (METHOTREXATE SODIUM) [Suspect]
     Active Substance: METHOTREXATE SODIUM
     Indication: RHEUMATOID ARTHRITIS
     Dosage: 25 MILLIGRAM DAILY;
     Route: 048
     Dates: start: 201512
  9. OMEPRAZOL CAPSULE MGA 20MG [Concomitant]
     Dosage: 40 MICROGRAM DAILY;
     Route: 048

REACTIONS (1)
  - Glaucoma [Recovered/Resolved with Sequelae]

NARRATIVE: CASE EVENT DATE: 20160323
